FAERS Safety Report 6758429-2 (Version None)
Quarter: 2010Q2

REPORT INFORMATION
  Report Type: 
  Country: None (occurrence: None)
  Receive Date: 20100607
  Receipt Date: 20100602
  Transmission Date: 20101027
  Serious: Yes (Hospitalization, Other)
  Sender: FDA-Public Use
  Company Number: US-ROCHE-698575

PATIENT
  Sex: Female
  Weight: 56.7 kg

DRUGS (1)
  1. BONIVA [Suspect]
     Indication: OSTEOPENIA
     Dosage: FORM: PILL
     Route: 048
     Dates: start: 20090325

REACTIONS (21)
  - ABDOMINAL PAIN LOWER [None]
  - APPENDICITIS [None]
  - ARTHRALGIA [None]
  - BACK PAIN [None]
  - BONE PAIN [None]
  - CHEST DISCOMFORT [None]
  - DECREASED APPETITE [None]
  - ERUCTATION [None]
  - EYE PAIN [None]
  - FEELING JITTERY [None]
  - FLATULENCE [None]
  - GASTROOESOPHAGEAL REFLUX DISEASE [None]
  - GROIN PAIN [None]
  - INCOHERENT [None]
  - MALAISE [None]
  - MUSCLE SPASMS [None]
  - MYALGIA [None]
  - NAUSEA [None]
  - PAIN [None]
  - UNRESPONSIVE TO STIMULI [None]
  - WEIGHT DECREASED [None]
